FAERS Safety Report 5123638-5 (Version None)
Quarter: 2006Q4

REPORT INFORMATION
  Report Type: 
  Country: None (occurrence: None)
  Receive Date: 20060910
  Receipt Date: 20060201
  Transmission Date: 20070319
  Serious: Yes (Hospitalization)
  Sender: FDA-Public Use
  Company Number: US200602002393

PATIENT
  Age: 62 Year
  Sex: Female

DRUGS (4)
  1. HUMULIN R [Suspect]
     Indication: DIABETES MELLITUS
     Dates: start: 19920101
  2. HUMULIN L [Suspect]
     Indication: DIABETES MELLITUS
     Dates: start: 19920101
  3. ILETIN [Suspect]
  4. ILETIN [Suspect]

REACTIONS (8)
  - BLOOD GLUCOSE FLUCTUATION [None]
  - BLOOD GLUCOSE INCREASED [None]
  - CATARACT [None]
  - CYSTITIS [None]
  - FOOD ALLERGY [None]
  - HIP ARTHROPLASTY [None]
  - INSOMNIA [None]
  - PAIN [None]
